FAERS Safety Report 7095887-0 (Version None)
Quarter: 2010Q4

REPORT INFORMATION
  Report Type: 
  Country: None (occurrence: None)
  Receive Date: 20101101
  Receipt Date: 20101015
  Transmission Date: 20110411
  Serious: Yes (Congenital Anomaly)
  Sender: FDA-Public Use
  Company Number: AUR-APL-2010-02613

PATIENT

DRUGS (1)
  1. CITALOPRAM HYDROBROMIDE [Suspect]
     Indication: DEPRESSION
     Dosage: TRANSPLACENTAL
     Route: 064

REACTIONS (4)
  - ABORTION INDUCED [None]
  - CONGENITAL PULMONARY VALVE ATRESIA [None]
  - MATERNAL DRUGS AFFECTING FOETUS [None]
  - UNIVENTRICULAR HEART [None]
